FAERS Safety Report 22374048 (Version 1)
Quarter: 2023Q2

REPORT INFORMATION
  Report Type: Spontaneous
  Country: US (occurrence: US)
  Receive Date: 20230526
  Receipt Date: 20230526
  Transmission Date: 20230721
  Serious: No
  Sender: FDA-Public Use
  Company Number: US-JNJFOC-20230536053

PATIENT
  Age: 7 Year
  Sex: Male
  Weight: 22.7 kg

DRUGS (1)
  1. CONCERTA [Suspect]
     Active Substance: METHYLPHENIDATE HYDROCHLORIDE
     Indication: Attention deficit hyperactivity disorder
     Route: 065
     Dates: start: 20230511

REACTIONS (11)
  - Mydriasis [Unknown]
  - Migraine [Unknown]
  - Heart rate increased [Unknown]
  - Pyrexia [Unknown]
  - Weight bearing difficulty [Unknown]
  - Vomiting [Unknown]
  - Product coating issue [Unknown]
  - Product complaint [Unknown]
  - Viral infection [Unknown]
  - Product residue present [Unknown]
  - Staring [Unknown]

NARRATIVE: CASE EVENT DATE: 20230513
